FAERS Safety Report 11414979 (Version 1)
Quarter: 2015Q3

REPORT INFORMATION
  Report Type: Spontaneous
  Country: US (occurrence: None)
  Receive Date: 20150824
  Receipt Date: 20150824
  Transmission Date: 20151125
  Serious: No
  Sender: FDA-Public Use
  Company Number: None

PATIENT
  Age: 20 Year
  Sex: Female

DRUGS (15)
  1. POLYETHYLENE GLYCOL 3350. [Concomitant]
     Active Substance: POLYETHYLENE GLYCOL 3350
  2. CEFTAZIDIME. [Concomitant]
     Active Substance: CEFTAZIDIME
  3. CHOLECALCIFEROL [Concomitant]
     Active Substance: CHOLECALCIFEROL
  4. DOCUSATE [Concomitant]
     Active Substance: DOCUSATE
  5. ONDANSETRON [Concomitant]
     Active Substance: ONDANSETRON
  6. MAGNESIUM HYDROXIDE. [Concomitant]
     Active Substance: MAGNESIUM HYDROXIDE
  7. CETIRIZINE [Concomitant]
     Active Substance: CETIRIZINE HYDROCHLORIDE
  8. FAMOTIDINE. [Concomitant]
     Active Substance: FAMOTIDINE
  9. METOCLOPRAMIDE. [Concomitant]
     Active Substance: METOCLOPRAMIDE
  10. PANCREALIPASE [Concomitant]
     Active Substance: PANCRELIPASE
  11. INSULIN [Suspect]
     Active Substance: INSULIN NOS
     Indication: HYPERGLYCAEMIA
     Dosage: 5 UNITS NPH
     Route: 058
     Dates: start: 20150703
  12. MONTELUKAST [Concomitant]
     Active Substance: MONTELUKAST SODIUM
  13. URSODIAL [Concomitant]
  14. INSULIN [Suspect]
     Active Substance: INSULIN NOS
     Dosage: 2 UNITS NPH WITH LUNCH
     Route: 058
  15. LIDOCAINE. [Concomitant]
     Active Substance: LIDOCAINE

REACTIONS (4)
  - Cystic fibrosis [None]
  - Vomiting [None]
  - Condition aggravated [None]
  - Hypoglycaemia [None]

NARRATIVE: CASE EVENT DATE: 20150705
